FAERS Safety Report 8259050-X (Version None)
Quarter: 2012Q2

REPORT INFORMATION
  Report Type: 
  Country: None (occurrence: None)
  Receive Date: 20120404
  Receipt Date: 20120320
  Transmission Date: 20120825
  Serious: Yes (Other)
  Sender: FDA-Public Use
  Company Number: US-ROCHE-1055123

PATIENT
  Sex: Male

DRUGS (2)
  1. PREDNISONE TAB [Concomitant]
     Indication: CENTRAL NERVOUS SYSTEM INFECTION
     Route: 048
  2. MYCOPHENOLATE MOFETIL (CELLCEPT) [Suspect]
     Indication: PRODUCT USED FOR UNKNOWN INDICATION

REACTIONS (5)
  - CENTRAL NERVOUS SYSTEM INFECTION [None]
  - NOCARDIOSIS [None]
  - PNEUMONIA [None]
  - TRANSPLANT REJECTION [None]
  - COUGH [None]
